FAERS Safety Report 5347947-X (Version None)
Quarter: 2007Q2

REPORT INFORMATION
  Report Type: 
  Country: None (occurrence: None)
  Receive Date: 20070511
  Receipt Date: 20070424
  Transmission Date: 20071010
  Serious: Yes (Other)
  Sender: FDA-Public Use
  Company Number: WWISSUE-77

PATIENT
  Age: 58 Year
  Sex: Male

DRUGS (2)
  1. DOXYCYCLINE HYCLATE [Suspect]
     Indication: PROPHYLAXIS
     Dosage: 100MG/1 DAILY/ORAL
     Route: 048
     Dates: start: 20050927, end: 20051028
  2. DOXYCYCLINE HYCLATE [Suspect]
     Indication: PROPHYLAXIS
     Dosage: 100MG/1-2 DAILY/ORAL
     Route: 048
     Dates: start: 20050927, end: 20051028

REACTIONS (1)
  - INJURY [None]
